FAERS Safety Report 9817311 (Version 2)
Quarter: 2014Q1

REPORT INFORMATION
  Report Type: Report from Study
  Country: FR (occurrence: FR)
  Receive Date: 20140115
  Receipt Date: 20140201
  Transmission Date: 20141002
  Serious: Yes (Hospitalization, Other)
  Sender: FDA-Public Use
  Company Number: FR-ROCHE-1330156

PATIENT
  Sex: Female

DRUGS (19)
  1. MABTHERA [Suspect]
     Indication: RHEUMATOID ARTHRITIS
     Route: 042
     Dates: start: 20070302
  2. MABTHERA [Suspect]
     Route: 042
     Dates: start: 20070315
  3. MABTHERA [Suspect]
     Route: 042
     Dates: start: 20071003
  4. MABTHERA [Suspect]
     Route: 042
     Dates: start: 20071017
  5. MABTHERA [Suspect]
     Route: 042
     Dates: start: 20080403
  6. MABTHERA [Suspect]
     Route: 042
     Dates: start: 20080417
  7. MABTHERA [Suspect]
     Route: 042
     Dates: start: 20081024
  8. MABTHERA [Suspect]
     Route: 042
     Dates: start: 20081107
  9. MABTHERA [Suspect]
     Route: 042
     Dates: start: 20090527
  10. MABTHERA [Suspect]
     Route: 042
     Dates: start: 20090611
  11. MABTHERA [Suspect]
     Route: 042
     Dates: start: 20100105
  12. MABTHERA [Suspect]
     Route: 042
     Dates: start: 20110104
  13. MABTHERA [Suspect]
     Route: 042
     Dates: start: 20110126
  14. MABTHERA [Suspect]
     Route: 042
     Dates: start: 20110810
  15. MABTHERA [Suspect]
     Route: 042
     Dates: start: 20110824
  16. CORTANCYL [Concomitant]
     Route: 065
  17. CORTANCYL [Concomitant]
     Route: 065
     Dates: start: 20071003
  18. METHYLPREDNISOLONE [Concomitant]
     Route: 065
  19. PARACETAMOL [Concomitant]

REACTIONS (10)
  - Thermal burn [Recovered/Resolved]
  - Diarrhoea [Recovered/Resolved]
  - Bronchitis [Recovered/Resolved]
  - Hysterosalpingo-oophorectomy [Recovered/Resolved]
  - Pulmonary arterial pressure increased [Not Recovered/Not Resolved]
  - Arthrodesis [Recovered/Resolved]
  - Arthrodesis [Recovered/Resolved]
  - Hernial eventration [Recovered/Resolved]
  - Inguinal hernia [Recovered/Resolved]
  - Erythema [Recovered/Resolved]
